FAERS Safety Report 17997462 (Version 4)
Quarter: 2020Q4

REPORT INFORMATION
  Report Type: Spontaneous
  Country: TR (occurrence: TR)
  Receive Date: 20200709
  Receipt Date: 20201112
  Transmission Date: 20210113
  Serious: Yes (Other)
  Sender: FDA-Public Use
  Company Number: TR-ABBVIE-20K-161-3474634-00

PATIENT
  Sex: Female
  Weight: 65 kg

DRUGS (3)
  1. SALAZOPYRIN [Concomitant]
     Active Substance: SULFASALAZINE
     Indication: ANKYLOSING SPONDYLITIS
     Dosage: FREQUENCY: 2 X 2
     Route: 048
     Dates: start: 202001
  2. HUMIRA [Suspect]
     Active Substance: ADALIMUMAB
     Indication: ANKYLOSING SPONDYLITIS
     Route: 058
     Dates: end: 2020
  3. HUMIRA [Suspect]
     Active Substance: ADALIMUMAB
     Route: 058
     Dates: start: 202006

REACTIONS (2)
  - Intentional product misuse [Recovered/Resolved]
  - Uveitis [Recovered/Resolved]

NARRATIVE: CASE EVENT DATE: 2020
